FAERS Safety Report 7559628-2 (Version None)
Quarter: 2011Q2

REPORT INFORMATION
  Report Type: 
  Country: None (occurrence: None)
  Receive Date: 20110609
  Receipt Date: 20110527
  Transmission Date: 20111010
  Serious: Yes (Hospitalization)
  Sender: FDA-Public Use
  Company Number: 2011028726

PATIENT
  Age: 20 Year
  Sex: Male

DRUGS (1)
  1. MONONINE [Suspect]
     Indication: FACTOR IX DEFICIENCY
     Dates: start: 20110518, end: 20110518

REACTIONS (2)
  - HAEMATOMA [None]
  - IDIOPATHIC THROMBOCYTOPENIC PURPURA [None]
